FAERS Safety Report 6648768-8 (Version None)
Quarter: 2010Q1

REPORT INFORMATION
  Report Type: 
  Country: None (occurrence: None)
  Receive Date: 20100324
  Receipt Date: 20100311
  Transmission Date: 20100710
  Serious: Yes (Hospitalization)
  Sender: FDA-Public Use
  Company Number: JP-PFIZER INC-2010034489

PATIENT
  Age: 49 Year
  Sex: Male

DRUGS (5)
  1. SEIBULE [Suspect]
     Indication: TYPE 2 DIABETES MELLITUS
     Dosage: 150MG DAILY
     Route: 048
     Dates: start: 20091102, end: 20091215
  2. ACTOS [Suspect]
     Dosage: 15MG DAILY
     Route: 048
     Dates: end: 20091222
  3. MICARDIS [Concomitant]
     Dosage: 40 MG, UNK
     Route: 048
  4. TENORMIN [Concomitant]
     Dosage: 25 MG, UNK
     Route: 048
  5. AMARYL [Concomitant]
     Dosage: 1 MG, UNK
     Route: 048

REACTIONS (3)
  - ANAEMIA [None]
  - HEPATIC FUNCTION ABNORMAL [None]
  - OEDEMA [None]
